FAERS Safety Report 8904624 (Version 6)
Quarter: 2014Q1

REPORT INFORMATION
  Report Type: Spontaneous
  Country: US (occurrence: US)
  Receive Date: 20121112
  Receipt Date: 20140213
  Transmission Date: 20141002
  Serious: Yes (Hospitalization, Disabling, Other)
  Sender: FDA-Public Use
  Company Number: US-009507513-1211USA003570

PATIENT
  Sex: Female
  Weight: 70.75 kg

DRUGS (2)
  1. FOSAMAX [Suspect]
     Indication: OSTEOPOROSIS
     Dosage: 70 MG, QW
     Route: 048
     Dates: start: 2002, end: 200907
  2. FOSAMAX PLUS D [Suspect]
     Indication: OSTEOPOROSIS
     Dosage: 70MG-2800
     Route: 048
     Dates: end: 200907

REACTIONS (40)
  - Intramedullary rod insertion [Unknown]
  - Intramedullary rod insertion [Unknown]
  - Femur fracture [Unknown]
  - Femur fracture [Unknown]
  - Medical device removal [Unknown]
  - Endodontic procedure [Unknown]
  - Foot fracture [Unknown]
  - Impaired healing [Unknown]
  - Hypertension [Unknown]
  - Biliary cirrhosis primary [Unknown]
  - Osteoarthritis [Unknown]
  - Blood cholesterol increased [Not Recovered/Not Resolved]
  - Liver function test abnormal [Not Recovered/Not Resolved]
  - Chest pain [Unknown]
  - Medical device pain [Unknown]
  - Osteotomy [Unknown]
  - Decubitus ulcer [Unknown]
  - Skin disorder [Unknown]
  - Pilonidal sinus repair [Unknown]
  - Rhinoplasty [Unknown]
  - Cyst removal [Unknown]
  - Mass excision [Unknown]
  - Bunion operation [Unknown]
  - Vitamin D decreased [Unknown]
  - Osteopenia [Unknown]
  - Haematoma [Unknown]
  - Bone lesion [Unknown]
  - Hyperlipidaemia [Unknown]
  - Glucose tolerance impaired [Unknown]
  - Renal disorder [Unknown]
  - Spinal osteoarthritis [Unknown]
  - Ankle fracture [Unknown]
  - Diabetes mellitus [Unknown]
  - Anxiety [Unknown]
  - Headache [Unknown]
  - Nausea [Recovered/Resolved]
  - Vomiting [Recovered/Resolved]
  - Pain in extremity [Unknown]
  - Back pain [Unknown]
  - Dyspepsia [Unknown]
